FAERS Safety Report 4514166-6 (Version None)
Quarter: 2004Q4

REPORT INFORMATION
  Report Type: 
  Country: None (occurrence: None)
  Receive Date: 20041124
  Receipt Date: 20041111
  Transmission Date: 20050328
  Serious: Yes (Death)
  Sender: FDA-Public Use
  Company Number: A-CH2004-07766

PATIENT
  Age: 68 Year
  Sex: Female

DRUGS (7)
  1. TRACLEER [Suspect]
     Indication: PULMONARY HYPERTENSION
     Dosage: MG, ORAL
     Route: 048
     Dates: start: 20040907, end: 20040916
  2. TRACLEER [Suspect]
     Indication: PULMONARY HYPERTENSION
     Dosage: MG, ORAL
     Route: 048
     Dates: start: 20041010, end: 20041001
  3. DIURETICS [Concomitant]
  4. CALCIUM CHANNEL BLOCKERS [Concomitant]
  5. ACE INHIBITOR NOS [Concomitant]
  6. ASPIRIN [Concomitant]
  7. CYCLOPHOSPHAMIDE [Concomitant]

REACTIONS (5)
  - CARDIAC FAILURE [None]
  - CONDITION AGGRAVATED [None]
  - DEPRESSED LEVEL OF CONSCIOUSNESS [None]
  - SHOCK [None]
  - SYSTEMIC SCLEROSIS [None]
